FAERS Safety Report 12688426 (Version 7)
Quarter: 2017Q2

REPORT INFORMATION
  Report Type: Report from Study
  Country: US (occurrence: US)
  Receive Date: 20160825
  Receipt Date: 20170630
  Transmission Date: 20170830
  Serious: Yes (Hospitalization)
  Sender: FDA-Public Use
  Company Number: US-ACTELION-A-NJ2016-137840

PATIENT
  Age: 66 Year
  Sex: Female
  Weight: 65.76 kg

DRUGS (8)
  1. TYLENOL [Concomitant]
     Active Substance: ACETAMINOPHEN
  2. VELETRI [Suspect]
     Active Substance: EPOPROSTENOL
     Dosage: 19 NG/KG PER MIN
     Route: 042
     Dates: start: 20160614
  3. OPSUMIT [Suspect]
     Active Substance: MACITENTAN
     Indication: PULMONARY ARTERIAL HYPERTENSION
     Dosage: 10 MG, QD
     Route: 048
     Dates: start: 20170124
  4. SILDENAFIL. [Concomitant]
     Active Substance: SILDENAFIL
  5. LISINOPRIL. [Concomitant]
     Active Substance: LISINOPRIL
  6. LASIX [Concomitant]
     Active Substance: FUROSEMIDE
  7. VELETRI [Suspect]
     Active Substance: EPOPROSTENOL
     Indication: PULMONARY ARTERIAL HYPERTENSION
     Dosage: 5 NG/KG, PER MIN
     Route: 042
     Dates: start: 20160607
  8. CELEXA [Concomitant]
     Active Substance: CITALOPRAM HYDROBROMIDE

REACTIONS (32)
  - Catheter site pruritus [Unknown]
  - Condition aggravated [Unknown]
  - Pain in jaw [Not Recovered/Not Resolved]
  - Eye haemorrhage [Unknown]
  - Fatigue [Unknown]
  - Dyspnoea [Unknown]
  - Erythema [Unknown]
  - Rash [Not Recovered/Not Resolved]
  - Cough [Unknown]
  - Photophobia [Unknown]
  - Headache [Unknown]
  - Diarrhoea [Unknown]
  - Presyncope [Unknown]
  - Syncope [Unknown]
  - Application site pruritus [Unknown]
  - Insomnia [Not Recovered/Not Resolved]
  - Somnolence [Unknown]
  - Device leakage [Unknown]
  - Device infusion issue [Unknown]
  - Dizziness [Unknown]
  - Pain in extremity [Not Recovered/Not Resolved]
  - Hypotension [Unknown]
  - Haemorrhage [Unknown]
  - Sinus disorder [Unknown]
  - Weight decreased [Unknown]
  - Loss of consciousness [Unknown]
  - Tremor [Unknown]
  - Catheter site haemorrhage [Unknown]
  - Catheter management [Unknown]
  - Nausea [Unknown]
  - Flushing [Unknown]
  - Feeling cold [Unknown]

NARRATIVE: CASE EVENT DATE: 201702
